FAERS Safety Report 19603690 (Version 1)
Quarter: 2021Q3

REPORT INFORMATION
  Report Type: Other
  Country: US (occurrence: US)
  Receive Date: 20210723
  Receipt Date: 20210723
  Transmission Date: 20211014
  Serious: Yes (Other)
  Sender: FDA-Public Use
  Company Number: US-APOTEX-2021AP022723

PATIENT
  Age: 54 Year
  Sex: Male

DRUGS (9)
  1. RANITIDINE TABLETS [Suspect]
     Active Substance: RANITIDINE HYDROCHLORIDE
     Indication: DYSPEPSIA
  2. RANITIDINE. [Suspect]
     Active Substance: RANITIDINE
     Dosage: OTHER (ALTERNATED ZANTAC + RANITIDINE USE )
     Route: 065
     Dates: start: 200801, end: 201709
  3. RANITIDINE. [Suspect]
     Active Substance: RANITIDINE
     Indication: DYSPEPSIA
  4. RANITIDINE TABLETS [Suspect]
     Active Substance: RANITIDINE HYDROCHLORIDE
     Indication: GASTROOESOPHAGEAL REFLUX DISEASE
  5. RANITIDINE. [Suspect]
     Active Substance: RANITIDINE
     Indication: GASTROOESOPHAGEAL REFLUX DISEASE
  6. ZANTAC [Suspect]
     Active Substance: RANITIDINE HYDROCHLORIDE
     Indication: DYSPEPSIA
  7. ZANTAC [Suspect]
     Active Substance: RANITIDINE HYDROCHLORIDE
     Indication: GASTROOESOPHAGEAL REFLUX DISEASE
  8. RANITIDINE TABLETS [Suspect]
     Active Substance: RANITIDINE HYDROCHLORIDE
     Dosage: OTHER (ALTERNATED ZANTAC + RANITIDINE USE WHEREIN USE WAS 2 TO 3 TIMES DAILY )
     Route: 065
     Dates: start: 200801, end: 201709
  9. ZANTAC [Suspect]
     Active Substance: RANITIDINE HYDROCHLORIDE
     Dosage: DAILY (1/1998 ? 1/2008 2 TO 3 TIMES DAILY; 1/2008 ? 9/2017 ALTERNATED ZANTAC + RANITIDINE USE WHEREI
     Route: 065
     Dates: start: 199801, end: 201709

REACTIONS (3)
  - Splenic neoplasm malignancy unspecified [Unknown]
  - Hodgkin^s disease [Unknown]
  - Pancreatic carcinoma [Unknown]

NARRATIVE: CASE EVENT DATE: 20180613
